FAERS Safety Report 23280167 (Version 1)
Quarter: 2023Q4

REPORT INFORMATION
  Report Type: Spontaneous
  Country: US (occurrence: US)
  Receive Date: 20231210
  Receipt Date: 20231210
  Transmission Date: 20240110
  Serious: No
  Sender: FDA-Public Use
  Company Number: US-COLLEGIUM PHARMACEUTICAL, INC.-20230500412

PATIENT

DRUGS (3)
  1. NUCYNTA [Suspect]
     Active Substance: TAPENTADOL HYDROCHLORIDE
     Indication: Pain
     Dosage: 50 MILLIGRAM, UNKNOWN
     Route: 065
     Dates: start: 2012
  2. NUCYNTA [Suspect]
     Active Substance: TAPENTADOL HYDROCHLORIDE
     Indication: Neuralgia
     Dosage: 100 MILLIGRAM, QID
     Route: 065
     Dates: start: 2019
  3. PROPRANOLOL [Concomitant]
     Active Substance: PROPRANOLOL HYDROCHLORIDE
     Indication: Hypertension
     Dosage: UNK, UNKNOWN
     Route: 065

REACTIONS (5)
  - Product dose omission issue [Unknown]
  - Pain [Unknown]
  - Disorientation [Unknown]
  - Dyspnoea [Unknown]
  - Rhinorrhoea [Unknown]

NARRATIVE: CASE EVENT DATE: 20230501
